FAERS Safety Report 17412737 (Version 2)
Quarter: 2022Q1

REPORT INFORMATION
  Report Type: Report from Study
  Country: US (occurrence: US)
  Receive Date: 20200213
  Receipt Date: 20220314
  Transmission Date: 20220423
  Serious: No
  Sender: FDA-Public Use
  Company Number: US-NOVARTISTESTPH-NVSC2020US037115

PATIENT
  Age: 41 Year
  Sex: Female

DRUGS (1)
  1. ILARIS [Suspect]
     Active Substance: CANAKINUMAB
     Indication: Product used for unknown indication
     Dosage: 300 MG/KG, QMO
     Route: 058

REACTIONS (5)
  - Headache [Unknown]
  - Blood pressure increased [Unknown]
  - Bursitis [Unknown]
  - Condition aggravated [Unknown]
  - Drug ineffective [Unknown]
